FAERS Safety Report 8498406 (Version 3)
Quarter: 2012Q4

REPORT INFORMATION
  Report Type: Report from Study
  Country: DK (occurrence: JP)
  Receive Date: 20120406
  Receipt Date: 20121022
  Transmission Date: 20130627
  Serious: No
  Sender: FDA-Public Use
  Company Number: JP-FRI-1000029489

PATIENT
  Age: 39 Year
  Sex: Male
  Weight: 82 kg

DRUGS (2)
  1. LEXAPRO [Suspect]
     Indication: DEPRESSION
     Dosage: 10 mg
     Route: 048
     Dates: start: 20120126
  2. ALPRAZOLAM [Concomitant]
     Indication: AUTONOMIC NERVOUS SYSTEM IMBALANCE
     Dosage: 1.2 mg
     Route: 048
     Dates: start: 20021120

REACTIONS (3)
  - Decreased appetite [Recovered/Resolved]
  - Nausea [Not Recovered/Not Resolved]
  - Diarrhoea [Not Recovered/Not Resolved]
